FAERS Safety Report 5658935-8 (Version None)
Quarter: 2008Q1

REPORT INFORMATION
  Report Type: 
  Country: None (occurrence: None)
  Receive Date: 20080310
  Receipt Date: 20070507
  Transmission Date: 20080703
  Serious: No
  Sender: FDA-Public Use
  Company Number: US-BAYER-200711430BCC

PATIENT
  Age: 28 Year
  Sex: Male
  Weight: 122 kg

DRUGS (1)
  1. ALEVE [Suspect]
     Dosage: UNIT DOSE: 220 MG
     Route: 048
     Dates: start: 20070506

REACTIONS (1)
  - STOMACH DISCOMFORT [None]
